FAERS Safety Report 5496426-8 (Version None)
Quarter: 2008Q1

REPORT INFORMATION
  Report Type: 
  Country: None (occurrence: None)
  Receive Date: 20071015
  Receipt Date: 20071015
  Transmission Date: 20080703
  Serious: Yes (Disabling)
  Sender: FDA-Public Use
  Company Number: None

PATIENT
  Age: 47 Year
  Sex: Male
  Weight: 71.2147 kg

DRUGS (1)
  1. CREST PRO-HEALTH  RINSE (ALCOHOL FREE) [Suspect]
     Indication: DENTAL DISORDER PROPHYLAXIS
     Dosage: 1/2 CAP DAILY PO
     Route: 048
     Dates: start: 20070901, end: 20071005

REACTIONS (1)
  - TOOTH DISCOLOURATION [None]
